FAERS Safety Report 4269455-X (Version None)
Quarter: 2004Q1

REPORT INFORMATION
  Report Type: 
  Country: None (occurrence: None)
  Receive Date: 20040112
  Receipt Date: 20040112
  Transmission Date: 20041129
  Serious: Yes (Hospitalization)
  Sender: FDA-Public Use
  Company Number: None

PATIENT
  Age: 61 Year
  Sex: Male

DRUGS (14)
  1. ROSIGLITAZONE MALEATE [Suspect]
     Indication: DIABETES MELLITUS
     Dosage: 4 MG BOD
  2. METFORMIN HCL [Suspect]
     Indication: DIABETES MELLITUS
  3. INSULIN REG AND NPH [Concomitant]
  4. ISOSORBID [Concomitant]
  5. METOPROLOL [Concomitant]
  6. KCL TAB [Concomitant]
  7. NAPROSYN [Concomitant]
  8. DOXEPIN HCL [Concomitant]
  9. LISINOPRIL [Concomitant]
  10. GEMFIBROZIL [Concomitant]
  11. SIMVASTATIN [Concomitant]
  12. AZATHIOPRINE [Concomitant]
  13. VENLAFAXINE HCL [Concomitant]
  14. LASIX [Concomitant]

REACTIONS (2)
  - BLOOD GLUCOSE DECREASED [None]
  - COMA [None]
